FAERS Safety Report 25179624 (Version 1)
Quarter: 2025Q2

REPORT INFORMATION
  Report Type: Spontaneous
  Country: US (occurrence: US)
  Receive Date: 20250409
  Receipt Date: 20250409
  Transmission Date: 20250717
  Serious: No
  Sender: LANNETT
  Company Number: US-LANNETT COMPANY, INC.-US-2024LAN000112

PATIENT
  Sex: Female

DRUGS (1)
  1. LEVOTHYROXINE SODIUM [Suspect]
     Active Substance: LEVOTHYROXINE SODIUM
     Indication: Product used for unknown indication
     Route: 065
     Dates: start: 2019, end: 2022

REACTIONS (1)
  - Feeling abnormal [Recovered/Resolved]
